FAERS Safety Report 21844815 (Version 1)
Quarter: 2023Q1

REPORT INFORMATION
  Report Type: Spontaneous
  Country: US (occurrence: US)
  Receive Date: 20230110
  Receipt Date: 20230110
  Transmission Date: 20230418
  Serious: No
  Sender: FDA-Public Use
  Company Number: US-MYLANLABS-2022M1132081

PATIENT
  Age: 70 Year
  Sex: Male

DRUGS (1)
  1. SEMGLEE (INSULIN GLARGINE-YFGN) [Suspect]
     Active Substance: INSULIN GLARGINE-YFGN
     Indication: Product used for unknown indication
     Dosage: 10 INTERNATIONAL UNIT
     Route: 058

REACTIONS (3)
  - Weight decreased [Unknown]
  - Wrong technique in device usage process [Unknown]
  - Device breakage [Unknown]

NARRATIVE: CASE EVENT DATE: 20221118
